FAERS Safety Report 11285782 (Version 1)
Quarter: 2015Q3

REPORT INFORMATION
  Report Type: Spontaneous
  Country: DE (occurrence: DE)
  Receive Date: 20150721
  Receipt Date: 20150721
  Transmission Date: 20151125
  Serious: Yes (Life-Threatening, Hospitalization)
  Sender: FDA-Public Use
  Company Number: GXKR2015DE003432

PATIENT

DRUGS (14)
  1. TORASEMID-1A PHARMA [Concomitant]
     Dosage: 1 DF, BID
  2. NOVAMINSULFON 1 A PHARMA [Concomitant]
     Dosage: MAX. 4X1
  3. METEX [Suspect]
     Active Substance: METFORMIN HYDROCHLORIDE
     Indication: RHEUMATOID ARTHRITIS
     Dosage: 1 DF, QW
     Route: 058
     Dates: start: 201409, end: 20150630
  4. TILIDIN COMP [Concomitant]
     Active Substance: NALOXONE HYDROCHLORIDE\TILIDINE HYDROCHLORIDE
     Dosage: 1.5 DF, BID
  5. RAMIPRIL. [Concomitant]
     Active Substance: RAMIPRIL
     Dosage: 0.5 DF, QD
  6. OMEPRAZOL 1 A PHARMA [Concomitant]
     Dosage: 1 DF, QD
  7. FALITHROM [Concomitant]
     Active Substance: PHENPROCOUMON
     Dosage: ACCORDING TO INR
  8. FOLSAN [Concomitant]
     Active Substance: FOLIC ACID
     Dosage: 1 DF, QW
  9. ALLOPURINOL 1A PHARMA [Suspect]
     Active Substance: ALLOPURINOL
     Indication: HYPERURICAEMIA
     Dosage: 2 DF, QD
     Route: 048
     Dates: start: 201405, end: 20150630
  10. SIMVASTATIN. [Concomitant]
     Active Substance: SIMVASTATIN
     Dosage: 1 DF, QD
  11. SPIROGAMMA [Concomitant]
     Dosage: 0.5 DF, QD
     Dates: start: 20150625
  12. QUENSYL [Suspect]
     Active Substance: HYDROXYCHLOROQUINE
     Indication: RHEUMATOID ARTHRITIS
     Dosage: 200 MG, QD
     Route: 048
     Dates: start: 201409, end: 20150630
  13. RAMIPLUS AL [Concomitant]
     Dosage: 1 DF, QD
  14. DEKRISTOL [Concomitant]
     Active Substance: CHOLECALCIFEROL

REACTIONS (1)
  - Myelodysplastic syndrome [Not Recovered/Not Resolved]

NARRATIVE: CASE EVENT DATE: 20150630
